FAERS Safety Report 6979944-2 (Version None)
Quarter: 2010Q3

REPORT INFORMATION
  Report Type: 
  Country: None (occurrence: None)
  Receive Date: 20100914
  Receipt Date: 20090331
  Transmission Date: 20110219
  Serious: Yes (Life-Threatening)
  Sender: FDA-Public Use
  Company Number: GB-BAXTER-2009BH004928

PATIENT
  Age: 21 Year
  Sex: Female

DRUGS (9)
  1. ALBUMIN (HUMAN) [Suspect]
     Indication: PRODUCT USED FOR UNKNOWN INDICATION
     Route: 065
     Dates: start: 20090228, end: 20090228
  2. CALCIUM [Suspect]
     Indication: BLOOD CALCIUM DECREASED
     Route: 065
     Dates: start: 20090228, end: 20090228
  3. CYCLOPHOSPHAMIDE [Concomitant]
     Route: 042
     Dates: start: 20090227
  4. MESNA [Concomitant]
     Route: 042
  5. METHYLPREDNISOLONE [Concomitant]
     Route: 042
  6. OMEPRAZOLE [Concomitant]
     Route: 048
  7. PREDNISOLONE [Concomitant]
     Dates: start: 20090228, end: 20090228
  8. QVAR 40 [Concomitant]
     Route: 055
     Dates: start: 20090227, end: 20090228
  9. SEPTRIN [Concomitant]
     Route: 048
     Dates: start: 20090227, end: 20090228

REACTIONS (4)
  - DYSPNOEA [None]
  - HEADACHE [None]
  - SWELLING FACE [None]
  - URTICARIA [None]
